FAERS Safety Report 6502601-3 (Version None)
Quarter: 2009Q4

REPORT INFORMATION
  Report Type: 
  Country: None (occurrence: None)
  Receive Date: 20091217
  Receipt Date: 20091116
  Transmission Date: 20100525
  Serious: No
  Sender: FDA-Public Use
  Company Number: US-BAYER-200939978NA

PATIENT
  Sex: Male

DRUGS (5)
  1. AVELOX [Suspect]
     Indication: DRUG USE FOR UNKNOWN INDICATION
  2. CYMBALTA [Concomitant]
  3. LAMICTAL [Concomitant]
  4. BENZODIAZEPINE [Concomitant]
  5. PHENERGAN HCL [Concomitant]

REACTIONS (2)
  - GASTROENTERITIS [None]
  - THROMBOCYTOSIS [None]
